FAERS Safety Report 6866964-1 (Version None)
Quarter: 2010Q3

REPORT INFORMATION
  Report Type: 
  Country: None (occurrence: None)
  Receive Date: 20100722
  Receipt Date: 20100722
  Transmission Date: 20110219
  Serious: Yes (Other)
  Sender: FDA-Public Use
  Company Number: None

PATIENT
  Age: 76 Year
  Sex: Female
  Weight: 47.1741 kg

DRUGS (1)
  1. AVELOX [Suspect]
     Indication: PAROTID DUCT OBSTRUCTION
     Dosage: 400 MG PO
     Route: 048
     Dates: start: 20100416

REACTIONS (9)
  - ARTHRALGIA [None]
  - CONFUSIONAL STATE [None]
  - COUGH [None]
  - ERYTHEMA [None]
  - LOCAL SWELLING [None]
  - PAIN IN EXTREMITY [None]
  - RASH GENERALISED [None]
  - SALIVARY GLAND DISORDER [None]
  - SOMNOLENCE [None]
